FAERS Safety Report 8291424-3 (Version None)
Quarter: 2012Q2

REPORT INFORMATION
  Report Type: 
  Country: None (occurrence: None)
  Receive Date: 20120417
  Receipt Date: 20120411
  Transmission Date: 20120825
  Serious: Yes (Hospitalization, Other)
  Sender: FDA-Public Use
  Company Number: US-TEVA-332986USA

PATIENT
  Sex: Male
  Weight: 128.94 kg

DRUGS (5)
  1. ACTIQ [Suspect]
     Indication: ARTHRALGIA
  2. HYDROMORPHONE HCL [Concomitant]
     Indication: PAIN
     Route: 048
  3. ACTIQ [Suspect]
     Indication: BACK PAIN
     Dosage: 1200 MCG PRN
     Route: 002
     Dates: end: 20120408
  4. GLYCERYL TRINITRATE [Concomitant]
     Indication: CHEST PAIN
  5. ACTIQ [Suspect]
     Indication: PAIN IN EXTREMITY

REACTIONS (9)
  - AGITATION [None]
  - WITHDRAWAL SYNDROME [None]
  - HYPERHIDROSIS [None]
  - DRUG PRESCRIBING ERROR [None]
  - CARDIAC FAILURE CONGESTIVE [None]
  - INSOMNIA [None]
  - OFF LABEL USE [None]
  - RENAL FAILURE [None]
  - FEELING JITTERY [None]
